FAERS Safety Report 24917102 (Version 1)
Quarter: 2025Q1

REPORT INFORMATION
  Report Type: Spontaneous
  Country: US (occurrence: US)
  Receive Date: 20250203
  Receipt Date: 20250203
  Transmission Date: 20250409
  Serious: No
  Sender: JOHNSON AND JOHNSON
  Company Number: US-JNJFOC-20241213493

PATIENT
  Age: 51 Year
  Sex: Female

DRUGS (1)
  1. XARELTO [Suspect]
     Active Substance: RIVAROXABAN
     Indication: Pulmonary embolism
     Route: 048
     Dates: start: 20241130

REACTIONS (6)
  - Headache [Unknown]
  - Hypertonic bladder [Not Recovered/Not Resolved]
  - Pollakiuria [Unknown]
  - Enuresis [Unknown]
  - Fluid retention [Unknown]
  - Incorrect dose administered [Unknown]
